FAERS Safety Report 11075143 (Version 3)
Quarter: 2015Q2

REPORT INFORMATION
  Report Type: Spontaneous
  Country: AR (occurrence: AR)
  Receive Date: 20150429
  Receipt Date: 20150605
  Transmission Date: 20150821
  Serious: No
  Sender: FDA-Public Use
  Company Number: AR-PFIZER INC-2015140115

PATIENT
  Age: 50 Year
  Sex: Female

DRUGS (1)
  1. SUTENT [Suspect]
     Active Substance: SUNITINIB MALATE
     Indication: RENAL CANCER METASTATIC
     Dosage: 50 MG, DAILY (SCHEME 4/2 OFF)
     Dates: start: 20150212, end: 20150517

REACTIONS (5)
  - Cough [Recovered/Resolved]
  - Blister [Not Recovered/Not Resolved]
  - Bronchitis [Recovered/Resolved]
  - Stomatitis [Not Recovered/Not Resolved]
  - Pain [Recovering/Resolving]

NARRATIVE: CASE EVENT DATE: 201504
